FAERS Safety Report 9929382 (Version 1)
Quarter: 2014Q1

REPORT INFORMATION
  Report Type: Spontaneous
  Country: US (occurrence: US)
  Receive Date: 20140227
  Receipt Date: 20140227
  Transmission Date: 20141002
  Serious: Yes (Other)
  Sender: FDA-Public Use
  Company Number: US-ASTRAZENECA-2014SE12211

PATIENT
  Age: 76 Year
  Sex: Male
  Weight: 86.2 kg

DRUGS (6)
  1. NEXIUM [Suspect]
     Indication: GASTROOESOPHAGEAL REFLUX DISEASE
     Route: 048
     Dates: end: 201401
  2. METOPROLOL SUCCINATE [Suspect]
     Indication: HYPERTENSION
     Dosage: GENERIC, 25 MG DAILY
     Route: 048
     Dates: start: 201312
  3. METOPROLOL SUCCINATE [Suspect]
     Indication: AORTIC DILATATION
     Dosage: GENERIC, 25 MG DAILY
     Route: 048
     Dates: start: 201312
  4. AMLODIPINE [Concomitant]
     Indication: HYPERTENSION
     Route: 048
  5. SYNTHROID [Concomitant]
     Indication: THYROID DISORDER
     Route: 048
  6. PANTOPRAZOLE [Concomitant]
     Dates: start: 201401

REACTIONS (7)
  - Aortic dilatation [Unknown]
  - Hypertension [Unknown]
  - Thyroid disorder [Unknown]
  - Urine abnormality [Unknown]
  - Urine odour abnormal [Unknown]
  - Intentional drug misuse [Unknown]
  - Therapy cessation [Unknown]
